FAERS Safety Report 7261069-2 (Version None)
Quarter: 2011Q1

REPORT INFORMATION
  Report Type: 
  Country: None (occurrence: None)
  Receive Date: 20110130
  Receipt Date: 20101229
  Transmission Date: 20110831
  Serious: No
  Sender: FDA-Public Use
  Company Number: US-ABBOTT-10P-163-0694192-00

PATIENT
  Sex: Female
  Weight: 63.56 kg

DRUGS (8)
  1. KEPPRA [Concomitant]
     Indication: CONVULSION
     Dosage: 1500 AM 1000 PM
  2. PREMARIN [Concomitant]
     Indication: HORMONE REPLACEMENT THERAPY
  3. AMBIEN [Concomitant]
     Indication: INSOMNIA
     Dosage: 1 AT BEDTIME
  4. NEXIUM [Concomitant]
     Indication: GASTROOESOPHAGEAL REFLUX DISEASE
     Dosage: 2 IN 1; NOT OTHERWISE SPECIFIED
  5. KLONOPIN [Concomitant]
     Indication: CONVULSION
     Dosage: 1 AT BEDTIME
  6. SINGULAIR [Concomitant]
     Indication: HYPERSENSITIVITY
  7. HUMIRA [Suspect]
     Indication: RHEUMATOID ARTHRITIS
     Dates: start: 20100301
  8. LEXAPRO [Concomitant]
     Indication: DEPRESSION

REACTIONS (4)
  - INAPPROPRIATE SCHEDULE OF DRUG ADMINISTRATION [None]
  - ARTHRALGIA [None]
  - JOINT SWELLING [None]
  - DEVICE MALFUNCTION [None]
